FAERS Safety Report 5530918-8 (Version None)
Quarter: 2007Q4

REPORT INFORMATION
  Report Type: 
  Country: None (occurrence: None)
  Receive Date: 20071130
  Receipt Date: 20071120
  Transmission Date: 20080405
  Serious: Yes (Other)
  Sender: FDA-Public Use
  Company Number: US-PFIZER INC-2007041920

PATIENT
  Sex: Female
  Weight: 111.1 kg

DRUGS (5)
  1. CHANTIX [Suspect]
  2. BEXTRA [Suspect]
  3. GLUCOTROL XL [Suspect]
  4. TETRACYCLINE [Suspect]
  5. ENALAPRIL [Suspect]

REACTIONS (2)
  - DYSKINESIA [None]
  - HYPERSENSITIVITY [None]
